FAERS Safety Report 9727720 (Version 2)
Quarter: 2014Q1

REPORT INFORMATION
  Report Type: Spontaneous
  Country: US (occurrence: US)
  Receive Date: 20131203
  Receipt Date: 20140310
  Transmission Date: 20141002
  Serious: Yes (Other)
  Sender: FDA-Public Use
  Company Number: US-LUNDBECK-DKLU1095657

PATIENT
  Age: 5 Year
  Sex: Female

DRUGS (7)
  1. SABRIL (TABLET) [Suspect]
     Indication: INFANTILE SPASMS
     Dates: start: 201310
  2. ONFI [Concomitant]
     Indication: PRODUCT USED FOR UNKNOWN INDICATION
     Dates: start: 2013
  3. ONFI [Concomitant]
     Dates: start: 2013
  4. DEPAKOTE [Concomitant]
     Indication: PRODUCT USED FOR UNKNOWN INDICATION
     Dates: start: 2013
  5. DEPAKOTE [Concomitant]
     Dates: start: 2013
  6. CLONAZEPAM [Concomitant]
     Indication: PRODUCT USED FOR UNKNOWN INDICATION
     Dates: end: 2013
  7. BANZEL [Concomitant]
     Indication: PRODUCT USED FOR UNKNOWN INDICATION

REACTIONS (4)
  - Grand mal convulsion [Recovered/Resolved]
  - Inappropriate affect [Not Recovered/Not Resolved]
  - Tremor [Recovered/Resolved]
  - Vomiting [Not Recovered/Not Resolved]
